FAERS Safety Report 10883919 (Version 1)
Quarter: 2015Q1

REPORT INFORMATION
  Report Type: Report from Study
  Country: AU (occurrence: AU)
  Receive Date: 20150304
  Receipt Date: 20150304
  Transmission Date: 20150721
  Serious: Yes (Hospitalization)
  Sender: FDA-Public Use
  Company Number: AU-INDICUS PHARMA-000310

PATIENT
  Age: 47 Year
  Sex: Female

DRUGS (9)
  1. SERTRALINE [Suspect]
     Active Substance: SERTRALINE HYDROCHLORIDE
  2. AZATHIOPRINE. [Suspect]
     Active Substance: AZATHIOPRINE
  3. FELODIPINE. [Suspect]
     Active Substance: FELODIPINE
     Dosage: FELODIPINE ER (1000MG)
  4. PARACETAMOL [Suspect]
     Active Substance: ACETAMINOPHEN
  5. ACETYLSALICYLIC ACID [Suspect]
     Active Substance: ASPIRIN
  6. METFORMIN [Suspect]
     Active Substance: METFORMIN HYDROCHLORIDE
     Dosage: IMMEDIATE RELEASE PREPARATION
  7. PREDNISONE. [Suspect]
     Active Substance: PREDNISONE
  8. ATENOLOL/ATENOLOL HYDROCHLORIDE [Suspect]
     Active Substance: ATENOLOL
  9. DOXEPIN/DOXEPIN HYDROCHLORIDE [Suspect]
     Active Substance: DOXEPIN HYDROCHLORIDE

REACTIONS (2)
  - Bradycardia [Unknown]
  - Intentional overdose [Unknown]
